FAERS Safety Report 22034132 (Version 1)
Quarter: 2023Q1

REPORT INFORMATION
  Report Type: Spontaneous
  Country: US (occurrence: None)
  Receive Date: 20230222
  Receipt Date: 20230222
  Transmission Date: 20230417
  Serious: No
  Sender: FDA-Public Use
  Company Number: None

PATIENT
  Age: 86 Year
  Sex: 0

DRUGS (1)
  1. AMBRISENTAN [Suspect]
     Active Substance: AMBRISENTAN
     Indication: Pulmonary arterial hypertension
     Dosage: FREQUENCY : DAILY;?
     Route: 048

REACTIONS (5)
  - Fatigue [None]
  - Feeling abnormal [None]
  - Dyspnoea [None]
  - Frustration tolerance decreased [None]
  - Dyspnoea exertional [None]

NARRATIVE: CASE EVENT DATE: 20230222
